FAERS Safety Report 26004487 (Version 1)
Quarter: 2025Q4

REPORT INFORMATION
  Report Type: Spontaneous
  Country: AU (occurrence: AU)
  Receive Date: 20251106
  Receipt Date: 20251106
  Transmission Date: 20260118
  Serious: Yes (Other)
  Sender: ROCHE
  Company Number: AU-ROCHE-10000356591

PATIENT
  Age: 71 Year
  Sex: Female

DRUGS (4)
  1. OCREVUS [Suspect]
     Active Substance: OCRELIZUMAB
     Indication: Product used for unknown indication
     Route: 042
     Dates: start: 2020, end: 2023
  2. OCREVUS [Suspect]
     Active Substance: OCRELIZUMAB
     Route: 042
     Dates: start: 202411
  3. KESIMPTA [Concomitant]
     Active Substance: OFATUMUMAB
  4. CLADRIBINE [Concomitant]
     Active Substance: CLADRIBINE

REACTIONS (4)
  - Fatigue [Unknown]
  - CD19 lymphocytes increased [Unknown]
  - Rheumatoid arthritis [Unknown]
  - COVID-19 [Unknown]
